FAERS Safety Report 6220004-6 (Version None)
Quarter: 2009Q2

REPORT INFORMATION
  Report Type: 
  Country: None (occurrence: None)
  Receive Date: 20090609
  Receipt Date: 20090604
  Transmission Date: 20091009
  Serious: Yes (Other)
  Sender: FDA-Public Use
  Company Number: FR-BRISTOL-MYERS SQUIBB COMPANY-14618235

PATIENT
  Age: 75 Year
  Sex: Female
  Weight: 60 kg

DRUGS (11)
  1. APROVEL FILM-COATED TABS [Suspect]
     Indication: HYPERTENSION
     Dosage: 1DF=1TABLET
     Route: 048
     Dates: start: 20070524, end: 20090317
  2. APROVEL FILM-COATED TABS [Suspect]
     Indication: OEDEMA
     Dosage: 1DF=1TABLET
     Route: 048
     Dates: start: 20070524, end: 20090317
  3. SERESTA [Concomitant]
  4. KARDEGIC [Concomitant]
  5. LODOZ [Concomitant]
     Dosage: 1 DF = 10 UNITS NOT SPECIFIED.
  6. VASTEN [Concomitant]
     Dosage: 1 DF = 20 UNITS NOT SPECIFIED.
  7. DAONIL [Concomitant]
  8. GLUCOPHAGE [Concomitant]
  9. SPIRONOLACTONE [Concomitant]
  10. ZANIDIP [Concomitant]
     Dosage: 1 DF = 10 UNITS NOT SPECIFIED.
  11. LANSOPRAZOLE [Concomitant]

REACTIONS (1)
  - MYELODYSPLASTIC SYNDROME [None]
